FAERS Safety Report 21160666 (Version 1)
Quarter: 2022Q3

REPORT INFORMATION
  Report Type: Spontaneous
  Country: US (occurrence: US)
  Receive Date: 20220802
  Receipt Date: 20220802
  Transmission Date: 20221027
  Serious: Yes (Hospitalization, Other)
  Sender: FDA-Public Use
  Company Number: US-Accord-271423

PATIENT
  Sex: Male

DRUGS (4)
  1. METHOTREXATE [Suspect]
     Active Substance: METHOTREXATE
     Indication: Central nervous system lymphoma
  2. TEMOZOLOMIDE [Suspect]
     Active Substance: TEMOZOLOMIDE
     Indication: Central nervous system lymphoma
  3. RITUXIMAB [Concomitant]
     Active Substance: RITUXIMAB
     Indication: Central nervous system lymphoma
     Dosage: 375 MG/M2: 720 MG
  4. LEUCOVORIN [Concomitant]
     Active Substance: LEUCOVORIN
     Indication: Central nervous system lymphoma
     Dosage: 100 MG/M2: 200 MG

REACTIONS (6)
  - Crystal nephropathy [Recovered/Resolved]
  - Hypernatraemia [Recovered/Resolved]
  - Metabolic alkalosis [Recovered/Resolved]
  - Hepatic function abnormal [Recovered/Resolved]
  - Oedema [Recovered/Resolved]
  - Off label use [Unknown]
